FAERS Safety Report 6680825-2 (Version None)
Quarter: 2010Q2

REPORT INFORMATION
  Report Type: 
  Country: None (occurrence: None)
  Receive Date: 20100414
  Receipt Date: 20100404
  Transmission Date: 20101027
  Serious: Yes (Other)
  Sender: FDA-Public Use
  Company Number: CA-JNJFOC-20100401542

PATIENT
  Age: 27 Year
  Sex: Male

DRUGS (3)
  1. IMODIUM QUICK DISSOLVE [Suspect]
     Route: 048
  2. IMODIUM QUICK DISSOLVE [Suspect]
     Indication: DIARRHOEA
     Route: 048
  3. ADVIL [Suspect]
     Indication: DRUG USE FOR UNKNOWN INDICATION
     Route: 065

REACTIONS (4)
  - ABDOMINAL PAIN UPPER [None]
  - CONSTIPATION [None]
  - HAEMATOCHEZIA [None]
  - HYPERTHERMIA [None]
